FAERS Safety Report 15713128 (Version 1)
Quarter: 2018Q4

REPORT INFORMATION
  Report Type: Spontaneous
  Country: FR (occurrence: FR)
  Receive Date: 20181212
  Receipt Date: 20181212
  Transmission Date: 20190205
  Serious: Yes (Hospitalization)
  Sender: FDA-Public Use
  Company Number: FR-BAYER-2018-227989

PATIENT
  Age: 56 Year
  Sex: Female

DRUGS (1)
  1. ULTRAVIST [Suspect]
     Active Substance: IOPROMIDE
     Indication: NUCLEAR MAGNETIC RESONANCE IMAGING ABDOMINAL
     Dosage: 95 ML, ONCE
     Route: 042
     Dates: start: 20181205, end: 20181205

REACTIONS (3)
  - Oedema [None]
  - Headache [None]
  - Nasal congestion [None]

NARRATIVE: CASE EVENT DATE: 20181205
